FAERS Safety Report 4356028-3 (Version None)
Quarter: 2004Q2

REPORT INFORMATION
  Report Type: 
  Country: None (occurrence: None)
  Receive Date: 20040511
  Receipt Date: 20040427
  Transmission Date: 20050107
  Serious: Yes (Life-Threatening)
  Sender: FDA-Public Use
  Company Number: FR-ROCHE-365528

PATIENT
  Age: 81 Year

DRUGS (1)
  1. ROCEPHIN [Suspect]
     Indication: DRUG USE FOR UNKNOWN INDICATION
     Route: 030

REACTIONS (3)
  - ANGIONEUROTIC OEDEMA [None]
  - CHEST X-RAY ABNORMAL [None]
  - MALAISE [None]
